FAERS Safety Report 10048187 (Version 1)
Quarter: 2014Q1

REPORT INFORMATION
  Report Type: Spontaneous
  Country: US (occurrence: None)
  Receive Date: 20140306
  Receipt Date: 20140306
  Transmission Date: 20141002
  Serious: Yes (Other)
  Sender: FDA-Public Use
  Company Number: 163-21880-13094555

PATIENT
  Age: 65 Year
  Sex: Male

DRUGS (8)
  1. REVLIMID (LENALIDOMIDE) (25 MILLIGRAM, CAPSULES) [Suspect]
     Indication: PLASMA CELL MYELOMA
     Dosage: 25 MG, 21 IN 28 D, PO  09/27/2013-09/29/2013 THERAPY DATES
     Route: 048
     Dates: start: 20130927, end: 20130929
  2. COUMADIN (WARFARIN SODIUM) [Concomitant]
  3. AMLODIPINE (AMLODIPINE) [Concomitant]
  4. HYDRALAZINE (HYDRALAZINE) [Concomitant]
  5. CARVEDILOL (CARVEDILOL) [Concomitant]
  6. ATORVASTATIN (ATORVASTATIN) [Concomitant]
  7. GABAPENTIN (GABAPENTIN) [Concomitant]
  8. CARBAMAZEPINE (CARBAMAZEPINE) [Concomitant]

REACTIONS (5)
  - Swelling face [None]
  - Skin discolouration [None]
  - Pruritus [None]
  - Rash erythematous [None]
  - Chills [None]
